FAERS Safety Report 4783585-5 (Version None)
Quarter: 2005Q3

REPORT INFORMATION
  Report Type: 
  Country: None (occurrence: None)
  Receive Date: 20050929
  Receipt Date: 20050912
  Transmission Date: 20060218
  Serious: Yes (Death, Hospitalization, Other)
  Sender: FDA-Public Use
  Company Number: PHNU2005DE03156

PATIENT
  Age: 59 Year
  Sex: Male
  Weight: 92 kg

DRUGS (10)
  1. PREDNISONE [Concomitant]
     Indication: RENAL TRANSPLANT
     Dosage: 7.5 MG DAILY
     Route: 048
     Dates: start: 19970919
  2. AZATHIOPRINE [Suspect]
     Indication: RENAL TRANSPLANT
     Dosage: 50 MG DAILY
     Route: 048
     Dates: start: 19970919, end: 20040626
  3. SANDIMMUNE [Suspect]
     Indication: RENAL TRANSPLANT
     Dosage: 75 MG, BID
     Route: 048
     Dates: start: 19970919, end: 20040711
  4. DILTIAZEM [Concomitant]
     Dosage: 1 DF, BID
  5. METOPROLOL SUCCINATE [Concomitant]
     Dosage: 1 DF, BID
  6. CALCIUM GLUCONATE [Concomitant]
     Dosage: 500 MG, QD
  7. VIGANTOLETTEN [Concomitant]
     Dosage: 1 DF, QD
  8. BENZBROMARONE [Concomitant]
     Dosage: 1 DF, QD
  9. OMEP [Concomitant]
     Dosage: 20 MG, QD
  10. PRAVASIN [Concomitant]
     Dosage: 20 MG, QD

REACTIONS (15)
  - ARRHYTHMIA [None]
  - ATRIAL FIBRILLATION [None]
  - BONE DISORDER [None]
  - BONE PAIN [None]
  - CYTOMEGALOVIRUS INFECTION [None]
  - DIALYSIS [None]
  - ELECTROPHORESIS ABNORMAL [None]
  - KIDNEY TRANSPLANT REJECTION [None]
  - MULTI-ORGAN FAILURE [None]
  - MULTIPLE MYELOMA [None]
  - MYOCARDIAL INFARCTION [None]
  - PNEUMONIA [None]
  - SEPSIS [None]
  - SEPTIC SHOCK [None]
  - TRANSPLANT REJECTION [None]
